FAERS Safety Report 7408186-1 (Version None)
Quarter: 2011Q2

REPORT INFORMATION
  Report Type: 
  Country: None (occurrence: None)
  Receive Date: 20110408
  Receipt Date: 20110408
  Transmission Date: 20111010
  Serious: Yes (Other)
  Sender: FDA-Public Use
  Company Number: None

PATIENT
  Age: 44 Year
  Sex: Male
  Weight: 68.4932 kg

DRUGS (2)
  1. SIMVASTATIN [Suspect]
     Indication: BLOOD CHOLESTEROL INCREASED
     Dosage: 40 MG DAILY PO
     Route: 048
     Dates: start: 20101207, end: 20110210
  2. SIMVASTATIN [Suspect]
     Indication: C-REACTIVE PROTEIN INCREASED
     Dosage: 40 MG DAILY PO
     Route: 048
     Dates: start: 20101207, end: 20110210

REACTIONS (4)
  - LIVER FUNCTION TEST ABNORMAL [None]
  - PARAESTHESIA [None]
  - TENDERNESS [None]
  - PAIN IN EXTREMITY [None]
